FAERS Safety Report 21352621 (Version 1)
Quarter: 2022Q3

REPORT INFORMATION
  Report Type: Spontaneous
  Country: None (occurrence: US)
  Receive Date: 20220920
  Receipt Date: 20220920
  Transmission Date: 20221027
  Serious: Yes (Other)
  Sender: FDA-Public Use
  Company Number: US-Jiangsu Hengrui Medicine Co., Ltd.-2132999

PATIENT
  Age: 5 Year
  Sex: Male

DRUGS (10)
  1. CYCLOPHOSPHAMIDE [Suspect]
     Active Substance: CYCLOPHOSPHAMIDE
     Indication: Acute lymphocytic leukaemia refractory
  2. FLUDARABINE [Suspect]
     Active Substance: FLUDARABINE PHOSPHATE
  3. DEXAMETHASONE [Suspect]
     Active Substance: DEXAMETHASONE
  4. VINCRISTINE [Suspect]
     Active Substance: VINCRISTINE
     Route: 041
  5. RITUXIMAB [Suspect]
     Active Substance: RITUXIMAB
     Route: 041
  6. INOTUZUMAB OZOGAMICIN [Suspect]
     Active Substance: INOTUZUMAB OZOGAMICIN
     Route: 041
  7. METHOTREXATE [Suspect]
     Active Substance: METHOTREXATE
  8. CYTARABINE [Suspect]
     Active Substance: CYTARABINE
  9. PEGFILGRASTIM [Suspect]
     Active Substance: PEGFILGRASTIM
     Route: 041
  10. BLINATUMOMAB [Suspect]
     Active Substance: BLINATUMOMAB
     Route: 041

REACTIONS (6)
  - Cytokine release syndrome [Unknown]
  - Thrombocytopenia [Recovering/Resolving]
  - Neutropenia [Recovering/Resolving]
  - Anaemia [Recovering/Resolving]
  - Hyperphosphataemia [Unknown]
  - Hyperglycaemia [Unknown]
